FAERS Safety Report 7068797-2 (Version None)
Quarter: 2010Q4

REPORT INFORMATION
  Report Type: 
  Country: None (occurrence: None)
  Receive Date: 20101027
  Receipt Date: 20101027
  Transmission Date: 20110411
  Serious: Yes (Hospitalization, Other)
  Sender: FDA-Public Use
  Company Number: None

PATIENT
  Age: 26 Year
  Sex: Female
  Weight: 106.5953 kg

DRUGS (2)
  1. OXYCONTIN [Suspect]
     Indication: BACK PAIN
     Dosage: 30MG BID PO
     Route: 048
     Dates: start: 20101015
  2. OXYCONTIN [Suspect]
     Indication: INTERVERTEBRAL DISC PROTRUSION
     Dosage: 30MG BID PO
     Route: 048
     Dates: start: 20101015

REACTIONS (3)
  - GASTRIC DISORDER [None]
  - HEADACHE [None]
  - PRODUCT SUBSTITUTION ISSUE [None]
